FAERS Safety Report 4543845-X (Version None)
Quarter: 2005Q1

REPORT INFORMATION
  Report Type: 
  Country: None (occurrence: None)
  Receive Date: 20050104
  Receipt Date: 20041213
  Transmission Date: 20050727
  Serious: Yes (Other)
  Sender: FDA-Public Use
  Company Number: PHEH2004US13241

PATIENT
  Age: 60 Year
  Sex: Female

DRUGS (18)
  1. ZELNORM [Suspect]
     Indication: IRRITABLE BOWEL SYNDROME
     Dosage: 6 MG, BID
     Dates: start: 20041204, end: 20041211
  2. SYNTHROID [Concomitant]
  3. ATIVAN [Concomitant]
     Dosage: 0.5 MG, BID
  4. CLONIDINE HCL [Concomitant]
     Dosage: 0.2 MG, QD
     Route: 048
  5. PROZAC [Concomitant]
     Dosage: 30 MG, QD
     Route: 048
  6. ECOTRIN [Concomitant]
     Dosage: 81 MG, QD
  7. CALCITRIOL [Concomitant]
  8. DIPHENHYDRAMINE HYDROCHLORIDE [Concomitant]
  9. VICODIN [Concomitant]
     Dosage: UNK, QHS
  10. VITAMIN CAP [Concomitant]
  11. THIAMINE HCL [Concomitant]
     Dosage: 50 MG, QD
  12. CALCIUM CARBONATE [Concomitant]
     Dosage: 2 G, QD
  13. NEURONTIN [Concomitant]
     Dosage: UNK MG, QD
     Route: 048
  14. CELLCEPT [Concomitant]
     Dosage: UNK MG, BID
  15. GENGRAF [Concomitant]
     Dosage: 75 MG, BID
  16. INSULIN [Concomitant]
  17. BENADRYL ^PFIZER WARNER-LAMBERT^ [Concomitant]
     Dosage: 50 MG, QHS
     Route: 048
  18. ROCALTROL [Concomitant]
     Dosage: 0.5 MG, QD
     Route: 048

REACTIONS (2)
  - BLOOD CREATININE INCREASED [None]
  - BLOOD UREA INCREASED [None]
